FAERS Safety Report 4667231-7 (Version None)
Quarter: 2005Q2

REPORT INFORMATION
  Report Type: 
  Country: None (occurrence: None)
  Receive Date: 20050520
  Receipt Date: 20050113
  Transmission Date: 20051028
  Serious: Yes (Hospitalization, Other)
  Sender: FDA-Public Use
  Company Number: US-BRISTOL-MYERS SQUIBB COMPANY-12831913

PATIENT
  Age: 77 Year
  Sex: Male
  Weight: 82 kg

DRUGS (10)
  1. SINEMET [Suspect]
     Indication: PARKINSON'S DISEASE
     Route: 048
     Dates: start: 20010901
  2. SOLU-MEDROL [Concomitant]
  3. ALBUTEROL [Concomitant]
  4. CLONAZEPAM [Concomitant]
  5. ENTACAPONE [Concomitant]
  6. FLUNISOLIDE [Concomitant]
  7. GUAIFENESIN [Concomitant]
  8. IPRATROPIUM BROMIDE [Concomitant]
  9. PRAMIPEXOLE HCL [Concomitant]
  10. SERTRALINE HCL [Concomitant]

REACTIONS (1)
  - MALIGNANT MELANOMA [None]
